FAERS Safety Report 7707042-9 (Version None)
Quarter: 2011Q3

REPORT INFORMATION
  Report Type: 
  Country: None (occurrence: None)
  Receive Date: 20110824
  Receipt Date: 20110818
  Transmission Date: 20111222
  Serious: Yes (Death)
  Sender: FDA-Public Use
  Company Number: GB-ABBOTT-11P-167-0729694-00

PATIENT
  Sex: Female

DRUGS (4)
  1. PHENOBARBITAL TAB [Suspect]
     Indication: EPILEPSY
  2. TOPIRAMATE [Suspect]
     Indication: EPILEPSY
     Route: 048
  3. CARBAMAZEPINE [Suspect]
     Indication: EPILEPSY
  4. VALPROATE SODIUM [Suspect]
     Indication: EPILEPSY

REACTIONS (3)
  - RENAL FAILURE [None]
  - STATUS EPILEPTICUS [None]
  - PANCREATITIS [None]
